FAERS Safety Report 4292956-5 (Version None)
Quarter: 2004Q1

REPORT INFORMATION
  Report Type: 
  Country: None (occurrence: None)
  Receive Date: 20040212
  Receipt Date: 20030804
  Transmission Date: 20041129
  Serious: No
  Sender: FDA-Public Use
  Company Number: US-GLAXOSMITHKLINE-A0419356A

PATIENT
  Sex: Female

DRUGS (5)
  1. PAXIL [Suspect]
     Indication: PERSONALITY DISORDER
     Dosage: 80MG PER DAY
     Route: 048
     Dates: start: 20030701
  2. LAMICTAL [Concomitant]
     Dosage: 125MG PER DAY
     Dates: start: 20030701
  3. TRAZODONE HCL [Concomitant]
  4. CYTOMEL [Concomitant]
  5. FIBERCON [Concomitant]

REACTIONS (1)
  - MYOCLONUS [None]
